FAERS Safety Report 16497465 (Version 3)
Quarter: 2021Q1

REPORT INFORMATION
  Report Type: Report from Study
  Country: ID (occurrence: ID)
  Receive Date: 20190628
  Receipt Date: 20210120
  Transmission Date: 20210419
  Serious: Yes (Hospitalization, Other)
  Sender: FDA-Public Use
  Company Number: ID-ASTRAZENECA-2019SE91757

PATIENT
  Sex: Female

DRUGS (2)
  1. TAGRISSO [Suspect]
     Active Substance: OSIMERTINIB
     Indication: NON-SMALL CELL LUNG CANCER
     Route: 048
     Dates: start: 20190329
  2. TAGRISSO [Suspect]
     Active Substance: OSIMERTINIB
     Indication: GENE MUTATION IDENTIFICATION TEST POSITIVE
     Route: 048
     Dates: start: 20190329

REACTIONS (8)
  - Cough [Unknown]
  - Nausea [Recovered/Resolved]
  - Renal impairment [Unknown]
  - Abdominal pain upper [Recovered/Resolved]
  - Mouth ulceration [Unknown]
  - Pyrexia [Recovered/Resolved]
  - Vomiting [Recovered/Resolved]
  - Dyspnoea [Unknown]
